FAERS Safety Report 8609086-1 (Version None)
Quarter: 2012Q3

REPORT INFORMATION
  Report Type: 
  Country: None (occurrence: None)
  Receive Date: 20120821
  Receipt Date: 20120808
  Transmission Date: 20120928
  Serious: No
  Sender: FDA-Public Use
  Company Number: US-ASTRAZENECA-2012SE55919

PATIENT
  Age: 50 Year
  Sex: Male
  Weight: 43.5 kg

DRUGS (3)
  1. MEDICINE FOR ANXIETY AND TO HELP SLEEP [Concomitant]
     Indication: SLEEP DISORDER
  2. SYMBICORT [Suspect]
     Indication: CHRONIC OBSTRUCTIVE PULMONARY DISEASE
     Dosage: 320 MCG, BID
     Route: 055
     Dates: start: 20120101
  3. MEDICINE FOR ANXIETY AND TO HELP SLEEP [Concomitant]
     Indication: ANXIETY

REACTIONS (3)
  - VISUAL IMPAIRMENT [None]
  - DYSPNOEA [None]
  - DRUG DOSE OMISSION [None]
